FAERS Safety Report 4658328-6 (Version None)
Quarter: 2005Q2

REPORT INFORMATION
  Report Type: 
  Country: None (occurrence: None)
  Receive Date: 20050510
  Receipt Date: 20050510
  Transmission Date: 20051028
  Serious: Yes (Hospitalization)
  Sender: FDA-Public Use
  Company Number: None

PATIENT
  Age: 72 Year
  Sex: Male
  Weight: 74.8435 kg

DRUGS (1)
  1. METFORMIN   850MG [Suspect]
     Indication: DIABETES MELLITUS
     Dosage: 850MG   QD   ORAL
     Route: 048
     Dates: start: 20040819, end: 20041104

REACTIONS (3)
  - ABDOMINAL PAIN [None]
  - HEADACHE [None]
  - VISION BLURRED [None]
